FAERS Safety Report 7745265-3 (Version None)
Quarter: 2011Q3

REPORT INFORMATION
  Report Type: 
  Country: None (occurrence: None)
  Receive Date: 20110913
  Receipt Date: 20110901
  Transmission Date: 20111222
  Serious: Yes (Hospitalization)
  Sender: FDA-Public Use
  Company Number: DK-CELGENEUS-044-21880-11071584

PATIENT
  Sex: Male
  Weight: 66.4 kg

DRUGS (8)
  1. REVLIMID [Suspect]
     Indication: MULTIPLE MYELOMA
     Dosage: 10 MILLIGRAM
     Route: 048
     Dates: start: 20110622
  2. PREDNISONE [Suspect]
     Indication: MULTIPLE MYELOMA
     Dosage: 125 MILLIGRAM
     Route: 048
     Dates: start: 20110622
  3. MELPHALAN HYDROCHLORIDE [Suspect]
     Indication: MULTIPLE MYELOMA
     Dosage: 12 MILLIGRAM
     Route: 048
     Dates: start: 20110622
  4. PREDNISONE [Suspect]
     Dosage: 150 MILLIGRAM
     Route: 048
     Dates: start: 20110721, end: 20110724
  5. REVLIMID [Suspect]
     Dosage: 10 MILLIGRAM
     Route: 048
     Dates: start: 20110721, end: 20110726
  6. REVLIMID [Suspect]
     Dosage: 10 MILLIGRAM
     Route: 048
     Dates: end: 20110810
  7. MELPHALAN HYDROCHLORIDE [Suspect]
     Dosage: 12 MILLIGRAM
     Route: 048
     Dates: start: 20110721, end: 20110724
  8. REVLIMID [Suspect]
     Dosage: 10 MILLIGRAM
     Route: 048
     Dates: end: 20110807

REACTIONS (3)
  - PNEUMOTHORAX [None]
  - INFECTION [None]
  - PNEUMONIA [None]
